FAERS Safety Report 8593927-0 (Version None)
Quarter: 2012Q3

REPORT INFORMATION
  Report Type: 
  Country: None (occurrence: None)
  Receive Date: 20120803
  Receipt Date: 20120803
  Transmission Date: 20120928
  Serious: Yes (Hospitalization)
  Sender: FDA-Public Use
  Company Number: None

PATIENT
  Age: 82 Year
  Sex: Male
  Weight: 60 kg

DRUGS (7)
  1. PLAVIX [Suspect]
     Indication: CORONARY ARTERY DISEASE
     Dosage: 75MG DAILY PO CHRONIC
     Route: 048
  2. PLAVIX [Suspect]
     Indication: TRANSIENT ISCHAEMIC ATTACK
     Dosage: 75MG DAILY PO CHRONIC
     Route: 048
  3. ATENOLOL [Concomitant]
  4. NORCO [Concomitant]
  5. SEROQUEL [Concomitant]
  6. ALBUTEROL [Concomitant]
  7. RANITIDINE [Concomitant]

REACTIONS (1)
  - HAEMORRHAGIC STROKE [None]
